FAERS Safety Report 12135010 (Version 1)
Quarter: 2016Q1

REPORT INFORMATION
  Report Type: Spontaneous
  Country: US (occurrence: US)
  Receive Date: 20160301
  Receipt Date: 20160301
  Transmission Date: 20160526
  Serious: Yes (Other)
  Sender: FDA-Public Use
  Company Number: US-LUNDBECK-DKLU2010442

PATIENT
  Age: 72 Year
  Sex: Female

DRUGS (2)
  1. NORTHERA [Suspect]
     Active Substance: DROXIDOPA
     Indication: PRODUCT USED FOR UNKNOWN INDICATION
     Route: 065
     Dates: start: 20160215
  2. NORTHERA [Suspect]
     Active Substance: DROXIDOPA
     Route: 065
     Dates: start: 20160223

REACTIONS (5)
  - Chest discomfort [Recovered/Resolved]
  - Abulia [Not Recovered/Not Resolved]
  - Headache [Recovered/Resolved]
  - Asthenia [Recovering/Resolving]
  - Brain neoplasm [Unknown]

NARRATIVE: CASE EVENT DATE: 20160215
